FAERS Safety Report 8857515 (Version 1)
Quarter: 2012Q4

REPORT INFORMATION
  Report Type: 
  Country: US (occurrence: US)
  Receive Date: 20121024
  Receipt Date: 20121024
  Transmission Date: 20130627
  Serious: Yes (Death, Hospitalization)
  Sender: FDA-Public Use
  Company Number: US-GLAXOSMITHKLINE-A0892672A

PATIENT
  Age: 70 Year
  Sex: Female

DRUGS (1)
  1. AVANDIA [Suspect]
     Indication: DIABETES MELLITUS
     Route: 048
     Dates: start: 20010105, end: 20061130

REACTIONS (7)
  - Cardiac arrest [Fatal]
  - Hypoxia [Fatal]
  - Renal failure [Unknown]
  - Cerebrovascular accident [Unknown]
  - Coronary arterial stent insertion [Unknown]
  - Arrhythmia [Fatal]
  - Cardiovascular disorder [Unknown]
